FAERS Safety Report 4437469-2 (Version None)
Quarter: 2004Q3

REPORT INFORMATION
  Report Type: 
  Country: None (occurrence: None)
  Receive Date: 20040830
  Receipt Date: 20040819
  Transmission Date: 20050211
  Serious: Yes (Hospitalization)
  Sender: FDA-Public Use
  Company Number: ES-MERCK-0408ESP00015

PATIENT
  Age: 74 Year
  Sex: Female

DRUGS (4)
  1. BENTAZEPAM [Concomitant]
     Route: 065
  2. MIANSERIN HYDROCHLORIDE [Concomitant]
     Route: 065
  3. VIOXX [Suspect]
     Indication: MUSCULOSKELETAL PAIN
     Route: 048
  4. SERTRALINE HYDROCHLORIDE [Concomitant]
     Route: 065

REACTIONS (5)
  - COLITIS ISCHAEMIC [None]
  - DRUG TOXICITY [None]
  - JAUNDICE CHOLESTATIC [None]
  - RENAL FAILURE ACUTE [None]
  - VANISHING BILE DUCT SYNDROME [None]
